FAERS Safety Report 5221896-X (Version None)
Quarter: 2007Q1

REPORT INFORMATION
  Report Type: 
  Country: None (occurrence: None)
  Receive Date: 20070129
  Receipt Date: 20070119
  Transmission Date: 20070707
  Serious: Yes (Other)
  Sender: FDA-Public Use
  Company Number: BR-ROCHE-479600

PATIENT
  Age: 62 Year
  Sex: Male
  Weight: 90 kg

DRUGS (5)
  1. XENICAL [Suspect]
     Indication: WEIGHT CONTROL
     Dosage: PATIENT HAD BEEN TAKING ORLISTAT FOR ABOUT 5 YEARS
     Route: 048
  2. XENICAL [Suspect]
     Route: 048
     Dates: start: 20060615
  3. GINKGO BILOBA [Concomitant]
     Indication: TINNITUS
     Route: 048
  4. PURAN T4 [Concomitant]
     Indication: THYROID DISORDER
     Route: 048
  5. SIMVASTATIN [Concomitant]
     Route: 048

REACTIONS (1)
  - GALLBLADDER DISORDER [None]
